FAERS Safety Report 18819896 (Version 2)
Quarter: 2021Q1

REPORT INFORMATION
  Report Type: Spontaneous
  Country: BE (occurrence: BE)
  Receive Date: 20210202
  Receipt Date: 20210226
  Transmission Date: 20210419
  Serious: Yes (Hospitalization, Other)
  Sender: FDA-Public Use
  Company Number: BE-TERSERA THERAPEUTICS LLC-2021TRS000410

PATIENT

DRUGS (10)
  1. TAXOTERE [Concomitant]
     Active Substance: DOCETAXEL
     Indication: PRODUCT USED FOR UNKNOWN INDICATION
     Dosage: UNK
     Route: 065
     Dates: start: 2015
  2. HERCEPTIN [Concomitant]
     Active Substance: TRASTUZUMAB
     Indication: PRODUCT USED FOR UNKNOWN INDICATION
     Dosage: UNK
     Route: 065
  3. CYCLOFOSFAMIDE [Concomitant]
     Active Substance: CYCLOPHOSPHAMIDE
     Indication: PRODUCT USED FOR UNKNOWN INDICATION
     Dosage: UNK
     Route: 065
     Dates: start: 2015
  4. NOLVADEX?D [Suspect]
     Active Substance: TAMOXIFEN CITRATE
     Indication: BREAST CANCER MALE
     Dosage: 20 MILLIGRAM, OD
     Route: 048
     Dates: start: 201503, end: 202007
  5. LETROZOLE. [Concomitant]
     Active Substance: LETROZOLE
     Indication: BREAST CANCER MALE
     Dosage: UNK
     Route: 065
     Dates: start: 20200708
  6. IBRANCE [Concomitant]
     Active Substance: PALBOCICLIB
     Dosage: UNK, DOSE REDUCTION TO 100 MG
     Route: 065
     Dates: start: 20200904
  7. ZOLADEX [Suspect]
     Active Substance: GOSERELIN ACETATE
     Indication: BREAST CANCER MALE
     Dosage: UNK
     Route: 058
     Dates: start: 20200708
  8. NOLVADEX?D [Suspect]
     Active Substance: TAMOXIFEN CITRATE
     Dosage: UNK
     Route: 048
  9. IBRANCE [Concomitant]
     Active Substance: PALBOCICLIB
     Indication: PRODUCT USED FOR UNKNOWN INDICATION
     Dosage: UNK
     Route: 065
     Dates: start: 20200708
  10. XARELTO [Concomitant]
     Active Substance: RIVAROXABAN
     Indication: PRODUCT USED FOR UNKNOWN INDICATION
     Dosage: UNK
     Route: 065

REACTIONS (8)
  - Cardiac failure [Not Recovered/Not Resolved]
  - Ejection fraction decreased [Not Recovered/Not Resolved]
  - Bladder transitional cell carcinoma [Recovered/Resolved]
  - Bronchial hyperreactivity [Recovered/Resolved]
  - Tumour marker increased [Unknown]
  - Off label use [Not Recovered/Not Resolved]
  - Metastases to bone [Not Recovered/Not Resolved]
  - Atrial fibrillation [Recovered/Resolved]
